FAERS Safety Report 13736038 (Version 2)
Quarter: 2017Q3

REPORT INFORMATION
  Report Type: Spontaneous
  Country: JP (occurrence: JP)
  Receive Date: 20170710
  Receipt Date: 20170801
  Transmission Date: 20171127
  Serious: Yes (Other)
  Sender: FDA-Public Use
  Company Number: JP-ROCHE-1919356

PATIENT
  Age: 90 Year
  Sex: Female
  Weight: 33 kg

DRUGS (6)
  1. ROCEPHIN [Suspect]
     Active Substance: CEFTRIAXONE SODIUM
     Indication: URINARY TRACT INFECTION
     Route: 042
     Dates: start: 20170222, end: 20170302
  2. ELIQUIS [Concomitant]
     Active Substance: APIXABAN
     Route: 065
     Dates: start: 20170117
  3. ROCEPHIN [Suspect]
     Active Substance: CEFTRIAXONE SODIUM
     Indication: URINARY TRACT INFECTION
     Route: 042
     Dates: start: 20170221, end: 20170221
  4. LASIX [Concomitant]
     Active Substance: FUROSEMIDE
     Route: 065
  5. MICTONORM [Concomitant]
     Active Substance: PROPIVERINE HYDROCHLORIDE
     Route: 065
  6. ATORVASTATIN [Concomitant]
     Active Substance: ATORVASTATIN
     Route: 065

REACTIONS (1)
  - Cholelithiasis [Not Recovered/Not Resolved]

NARRATIVE: CASE EVENT DATE: 20170227
